FAERS Safety Report 10182570 (Version 1)
Quarter: 2014Q2

REPORT INFORMATION
  Report Type: Spontaneous
  Country: US (occurrence: None)
  Receive Date: 20140516
  Receipt Date: 20140516
  Transmission Date: 20141212
  Serious: Yes (Death)
  Sender: FDA-Public Use
  Company Number: SYM-2014-20859

PATIENT
  Age: 69 Year
  Sex: Male

DRUGS (1)
  1. XENAZINE [Suspect]
     Indication: HUNTINGTON^S DISEASE
     Dosage: 12.5MG ONCE DAILY FOR THE FIRST WEEK, 12.5MG TWICE DAILY THEREAFTER, ORAL
     Route: 048

REACTIONS (1)
  - Death [None]
